FAERS Safety Report 5133119-0 (Version None)
Quarter: 2006Q4

REPORT INFORMATION
  Report Type: 
  Country: None (occurrence: None)
  Receive Date: 20061017
  Receipt Date: 20061004
  Transmission Date: 20070319
  Serious: Yes (Other)
  Sender: FDA-Public Use
  Company Number: 2006123110

PATIENT
  Age: 10 Year
  Sex: Male

DRUGS (2)
  1. PHENYTOIN [Suspect]
     Indication: GRAND MAL CONVULSION
  2. CARBAMAZEPINE [Suspect]

REACTIONS (11)
  - ALANINE AMINOTRANSFERASE INCREASED [None]
  - ANAEMIA [None]
  - ASPARTATE AMINOTRANSFERASE INCREASED [None]
  - BLOOD ALKALINE PHOSPHATASE INCREASED [None]
  - CROSS SENSITIVITY REACTION [None]
  - DERMATITIS EXFOLIATIVE [None]
  - DERMATITIS PSORIASIFORM [None]
  - DRUG RASH WITH EOSINOPHILIA AND SYSTEMIC SYMPTOMS [None]
  - HEPATOMEGALY [None]
  - LEUKOCYTOSIS [None]
  - TREMOR [None]
